FAERS Safety Report 8489032 (Version 7)
Quarter: 2014Q2

REPORT INFORMATION
  Report Type: Spontaneous
  Country: US (occurrence: US)
  Receive Date: 20120402
  Receipt Date: 20140625
  Transmission Date: 20141212
  Serious: Yes (Hospitalization, Other)
  Sender: FDA-Public Use
  Company Number: US-009507513-1204USA00036

PATIENT
  Sex: Female
  Weight: 84.37 kg

DRUGS (5)
  1. FOSAMAX [Suspect]
     Indication: OSTEOPENIA
     Dosage: 10 MG, QD
     Route: 048
     Dates: start: 19951205
  2. FOSAMAX [Suspect]
     Dosage: 70 MG, QW
     Route: 048
     Dates: start: 20070829, end: 201008
  3. FOSAMAX PLUS D [Suspect]
     Indication: OSTEOPOROSIS
     Dosage: 70/2800 QW
     Route: 048
     Dates: start: 20071005
  4. COZAAR [Concomitant]
     Indication: HYPERTENSION
     Route: 048
     Dates: start: 1980
  5. VYTORIN [Concomitant]
     Indication: BLOOD CHOLESTEROL INCREASED
     Dosage: 10/20
     Route: 048
     Dates: start: 1980, end: 201103

REACTIONS (17)
  - Femur fracture [Unknown]
  - Internal fixation of fracture [Unknown]
  - Concussion [Unknown]
  - Fall [Unknown]
  - Anaemia postoperative [Unknown]
  - Breast cyst [Unknown]
  - Cyst [Unknown]
  - Cervical polyp [Unknown]
  - Cervical polyp [Unknown]
  - Osteoporosis [Unknown]
  - Rectocele [Unknown]
  - Atrophic vulvovaginitis [Unknown]
  - Haemorrhoids [Unknown]
  - Limb asymmetry [Unknown]
  - Diabetes mellitus [Unknown]
  - Osteoarthritis [Unknown]
  - Upper respiratory tract infection [Unknown]
